FAERS Safety Report 6523660-8 (Version None)
Quarter: 2009Q4

REPORT INFORMATION
  Report Type: 
  Country: None (occurrence: None)
  Receive Date: 20091222
  Receipt Date: 20091214
  Transmission Date: 20100525
  Serious: Yes (Other)
  Sender: FDA-Public Use
  Company Number: 2009AL007775

PATIENT
  Age: 32 Year
  Sex: Male

DRUGS (6)
  1. TRAMADOL HCL [Suspect]
     Indication: PAIN
  2. CETIRIZINE HCL [Suspect]
     Indication: RHINITIS ALLERGIC
  3. ALBENDAZOLE [Concomitant]
  4. PHENYTOIN [Concomitant]
  5. STEROIDS [Concomitant]
  6. RANITIDINE [Concomitant]

REACTIONS (4)
  - AGGRESSION [None]
  - DELIRIUM [None]
  - HYPERHIDROSIS [None]
  - TACHYCARDIA [None]
